FAERS Safety Report 13692850 (Version 1)
Quarter: 2017Q2

REPORT INFORMATION
  Report Type: Report from Study
  Country: RS (occurrence: RS)
  Receive Date: 20170627
  Receipt Date: 20170627
  Transmission Date: 20170830
  Serious: Yes (Other)
  Sender: FDA-Public Use
  Company Number: RS-ROCHE-1953285

PATIENT

DRUGS (2)
  1. PEG-INTERFERON ALFA 2A [Suspect]
     Active Substance: PEGINTERFERON ALFA-2A
     Indication: CHRONIC HEPATITIS C
     Route: 058
  2. RIBAVIRIN. [Suspect]
     Active Substance: RIBAVIRIN
     Indication: CHRONIC HEPATITIS C
     Dosage: 1000-1200 MG PER DAY
     Route: 048

REACTIONS (17)
  - Local reaction [Unknown]
  - Insomnia [Unknown]
  - Thrombocytopenia [Unknown]
  - Nausea [Unknown]
  - Mood swings [Unknown]
  - Asthenia [Unknown]
  - Arthralgia [Unknown]
  - Rash [Unknown]
  - Hyperlipidaemia [Unknown]
  - Depression [Unknown]
  - Leukopenia [Unknown]
  - Myalgia [Unknown]
  - Influenza like illness [Unknown]
  - Alopecia [Unknown]
  - Genitourinary symptom [Unknown]
  - Anaemia [Unknown]
  - Vitiligo [Unknown]
